FAERS Safety Report 19350572 (Version 1)
Quarter: 2021Q2

REPORT INFORMATION
  Report Type: Report from Study
  Country: DE (occurrence: DE)
  Receive Date: 20210531
  Receipt Date: 20210531
  Transmission Date: 20210717
  Serious: Yes (Other)
  Sender: FDA-Public Use
  Company Number: DE-AUROBINDO-AUR-APL-2021-022800

PATIENT
  Sex: Male

DRUGS (5)
  1. CYCLOPHOSPHAMIDE. [Suspect]
     Active Substance: CYCLOPHOSPHAMIDE
     Indication: B-CELL LYMPHOMA
     Dosage: 750 MILLIGRAM/SQ. METER, ONCE A DAY
     Route: 042
     Dates: start: 20170809, end: 20170921
  2. DOXORUBICIN [Suspect]
     Active Substance: DOXORUBICIN
     Indication: B-CELL LYMPHOMA
     Dosage: 50 MILLIGRAM/SQ. METER, ONCE A DAY
     Route: 042
     Dates: start: 20170809, end: 20170921
  3. MABTHERA [Suspect]
     Active Substance: RITUXIMAB
     Indication: B-CELL LYMPHOMA
     Dosage: 375 MILLIGRAM/SQ. METER, ONCE A DAY
     Route: 042
     Dates: start: 20170808, end: 20171123
  4. PREDNISOLONE. [Suspect]
     Active Substance: PREDNISOLONE
     Indication: B-CELL LYMPHOMA
     Dosage: 500 MILLIGRAM (5 DAYS)
     Route: 065
     Dates: start: 20170809, end: 20170925
  5. VINCRISTINE SULFATE LIPOSOME INJECTION [Suspect]
     Active Substance: VINCRISTINE SULFATE
     Indication: B-CELL LYMPHOMA
     Dosage: 4.29 MILLIGRAM
     Route: 042
     Dates: start: 20170809, end: 20170905

REACTIONS (1)
  - Coronavirus infection [Recovered/Resolved]

NARRATIVE: CASE EVENT DATE: 20210412
